FAERS Safety Report 16106396 (Version 1)
Quarter: 2019Q1

REPORT INFORMATION
  Report Type: Spontaneous
  Country: US (occurrence: US)
  Receive Date: 20190322
  Receipt Date: 20190322
  Transmission Date: 20190418
  Serious: Yes (Other)
  Sender: FDA-Public Use
  Company Number: US-BAYER-2019-052071

PATIENT
  Age: 49 Year
  Sex: Male

DRUGS (1)
  1. ACETYLSALICYLIC ACID (PAIN AND FEVER) [Suspect]
     Active Substance: ASPIRIN
     Dosage: UNKNOWN QUANTITY

REACTIONS (7)
  - Toxicity to various agents [None]
  - Ataxia [None]
  - Confusional state [None]
  - Agitation [None]
  - Lethargy [None]
  - Drug abuse [None]
  - Delirium [None]
